FAERS Safety Report 7813015-8 (Version None)
Quarter: 2011Q4

REPORT INFORMATION
  Report Type: 
  Country: None (occurrence: None)
  Receive Date: 20111013
  Receipt Date: 20110929
  Transmission Date: 20120403
  Serious: Yes (Other)
  Sender: FDA-Public Use
  Company Number: BR-ROCHE-726353

PATIENT
  Sex: Female
  Weight: 87 kg

DRUGS (29)
  1. ACTEMRA [Suspect]
     Indication: RHEUMATOID ARTHRITIS
     Route: 042
     Dates: start: 20100311, end: 20100311
  2. ACTEMRA [Suspect]
     Route: 042
     Dates: start: 20100816, end: 20100816
  3. ACTEMRA [Suspect]
     Route: 042
     Dates: start: 20101101, end: 20101101
  4. ACTEMRA [Suspect]
     Route: 042
     Dates: start: 20110701, end: 20110701
  5. PREDNISONE [Concomitant]
  6. LOSACOR [Concomitant]
  7. PANTOPRAZOLE [Concomitant]
  8. ACTEMRA [Suspect]
     Route: 042
     Dates: start: 20100407, end: 20100407
  9. ACTEMRA [Suspect]
     Route: 042
     Dates: start: 20100507, end: 20100507
  10. SIMVASTATIN [Concomitant]
  11. ACTEMRA [Suspect]
     Route: 042
     Dates: start: 20100616, end: 20100616
  12. ACTEMRA [Suspect]
     Route: 042
     Dates: start: 20100904, end: 20100904
  13. CALCIUM CARBONATE [Concomitant]
  14. ACTEMRA [Suspect]
     Route: 042
     Dates: start: 20100707, end: 20100707
  15. ACTEMRA [Suspect]
     Route: 042
     Dates: start: 20101001, end: 20101001
  16. ACTEMRA [Suspect]
     Route: 042
     Dates: start: 20101201, end: 20101201
  17. ACTEMRA [Suspect]
     Route: 042
     Dates: start: 20110228, end: 20110228
  18. ACTEMRA [Suspect]
     Route: 042
     Dates: start: 20110401, end: 20110401
  19. ACTEMRA [Suspect]
     Route: 042
     Dates: start: 20110601, end: 20110601
  20. FLUOXETINE [Concomitant]
  21. OMEPRAZOLE [Concomitant]
  22. ACTEMRA [Suspect]
     Route: 042
     Dates: start: 20110101, end: 20110101
  23. ACTEMRA [Suspect]
     Route: 042
     Dates: start: 20110601, end: 20110601
  24. INDAPAMIDE [Concomitant]
  25. METFORMIN HCL [Concomitant]
  26. AMLODIPINE BESYLATE [Concomitant]
  27. ALENDRONIC ACID [Concomitant]
  28. ACTEMRA [Suspect]
     Route: 042
  29. ACTEMRA [Suspect]
     Route: 042
     Dates: start: 20110502, end: 20110502

REACTIONS (8)
  - WEIGHT INCREASED [None]
  - DYSLIPIDAEMIA [None]
  - SINUSITIS [None]
  - NASOPHARYNGITIS [None]
  - ARTHRALGIA [None]
  - DIABETES MELLITUS [None]
  - BRONCHITIS [None]
  - INFLUENZA [None]
